FAERS Safety Report 6903037-3 (Version None)
Quarter: 2010Q3

REPORT INFORMATION
  Report Type: 
  Country: None (occurrence: None)
  Receive Date: 20100803
  Receipt Date: 20080818
  Transmission Date: 20110219
  Serious: No
  Sender: FDA-Public Use
  Company Number: US-PFIZER INC-2008062187

PATIENT
  Sex: Female
  Weight: 64.41 kg

DRUGS (12)
  1. LYRICA [Suspect]
     Indication: FIBROMYALGIA
     Route: 048
     Dates: start: 20080514, end: 20080701
  2. TRAMADOL HYDROCHLORIDE [Concomitant]
  3. ESTROGENS SOL/INJ [Concomitant]
  4. OMEPRAZOLE [Concomitant]
  5. TRIAMTERENE AND HYDROCHLOROTHIAZIDE [Concomitant]
     Indication: HYPERTENSION
  6. METOPROLOL [Concomitant]
     Indication: HYPERTENSION
  7. SERTRALINE HYDROCHLORIDE [Concomitant]
  8. METFORMIN HCL [Concomitant]
  9. SIMVASTATIN [Concomitant]
  10. CYCLOBENZAPRINE [Concomitant]
  11. METHOTREXATE [Concomitant]
     Dates: end: 20080701
  12. VITAMIN TAB [Concomitant]

REACTIONS (5)
  - ABDOMINAL DISTENSION [None]
  - DIARRHOEA [None]
  - VISION BLURRED [None]
  - VOMITING [None]
  - WEIGHT INCREASED [None]
